FAERS Safety Report 6377841-7 (Version None)
Quarter: 2009Q3

REPORT INFORMATION
  Report Type: 
  Country: None (occurrence: None)
  Receive Date: 20090921
  Receipt Date: 20090914
  Transmission Date: 20100115
  Serious: Yes (Death)
  Sender: FDA-Public Use
  Company Number: AE-2009-182

PATIENT
  Age: 49 Year
  Sex: Male

DRUGS (9)
  1. FUROSEMIDE [Suspect]
     Dosage: ORAL
     Route: 048
  2. LAMOTRIGINE [Suspect]
     Dosage: ORAL
     Route: 048
  3. VENLAFAXINE [Suspect]
     Dosage: ORAL
     Route: 048
  4. TRAZODONE [Suspect]
     Dosage: ORAL
     Route: 048
  5. LISINOPRIL AND HYDROCHLOROTHIAZIDE [Suspect]
     Dosage: ORAL
     Route: 048
  6. LISINOPRIL [Suspect]
     Dosage: ORAL
     Route: 048
  7. SILDENAFIL CITRATE [Suspect]
     Dosage: ORAL
     Route: 048
  8. HYDROXYZINE [Suspect]
     Dosage: ORAL
     Route: 048
  9. GABAPENTIN [Suspect]
     Dosage: ORAL
     Route: 048

REACTIONS (3)
  - CARDIAC ARREST [None]
  - COMPLETED SUICIDE [None]
  - RESPIRATORY ARREST [None]
